FAERS Safety Report 8612795-1 (Version None)
Quarter: 2012Q3

REPORT INFORMATION
  Report Type: 
  Country: None (occurrence: None)
  Receive Date: 20120822
  Receipt Date: 20120201
  Transmission Date: 20120928
  Serious: No
  Sender: FDA-Public Use
  Company Number: US-ASTRAZENECA-2009SE18977

PATIENT
  Age: 77 Year
  Sex: Female
  Weight: 70.3 kg

DRUGS (11)
  1. LISINOPRIL [Suspect]
     Route: 048
  2. LAENDROANATE [Concomitant]
  3. NEXIUM [Suspect]
     Indication: ABDOMINAL DISCOMFORT
     Route: 048
  4. FENOFIBRATE [Concomitant]
     Indication: BLOOD CHOLESTEROL ABNORMAL
  5. NEXIUM [Suspect]
     Indication: GASTROOESOPHAGEAL REFLUX DISEASE
     Route: 048
  6. METOPROLOL TARTRATE [Concomitant]
  7. LIPITOR [Concomitant]
  8. SYMBICORT [Suspect]
     Indication: ASTHMA
     Dosage: 160/4.5 MCG BID
     Route: 055
  9. GABAPENTIN [Concomitant]
     Route: 048
     Dates: start: 20111001
  10. OXYBUTYNIN [Concomitant]
     Indication: RENAL DISORDER
  11. BONIVA [Concomitant]
     Dosage: ONCE A MONTH

REACTIONS (5)
  - MICTURITION URGENCY [None]
  - RENAL DISORDER [None]
  - HEADACHE [None]
  - COUGH [None]
  - PAIN IN EXTREMITY [None]
